FAERS Safety Report 7707873-5 (Version None)
Quarter: 2011Q3

REPORT INFORMATION
  Report Type: 
  Country: None (occurrence: None)
  Receive Date: 20110824
  Receipt Date: 20110810
  Transmission Date: 20111222
  Serious: Yes (Hospitalization)
  Sender: FDA-Public Use
  Company Number: US-ELI_LILLY_AND_COMPANY-US201108004331

PATIENT
  Sex: Female

DRUGS (7)
  1. LEVOTHROID [Concomitant]
  2. FORTEO [Suspect]
     Indication: OSTEOPOROSIS
     Dosage: 20 UG, QD
  3. BONIVA [Concomitant]
  4. OXYCONTIN [Concomitant]
  5. CALCIUM CARBONATE [Concomitant]
  6. FORTEO [Suspect]
     Dosage: 20 UG, QD
     Dates: start: 20110101, end: 20110618
  7. VITAMIN B-12 [Concomitant]

REACTIONS (3)
  - TOOTH EXTRACTION [None]
  - PRURITUS [None]
  - URTICARIA [None]
